FAERS Safety Report 5782193-7 (Version None)
Quarter: 2008Q2

REPORT INFORMATION
  Report Type: 
  Country: None (occurrence: None)
  Receive Date: 20080623
  Receipt Date: 20080613
  Transmission Date: 20081010
  Serious: Yes (Death)
  Sender: FDA-Public Use
  Company Number: US-SANOFI-SYNTHELABO-A03200802419

PATIENT
  Age: 40 Year
  Sex: Male

DRUGS (1)
  1. ELITEK [Suspect]
     Indication: DRUG USE FOR UNKNOWN INDICATION
     Route: 042

REACTIONS (5)
  - CARDIO-RESPIRATORY ARREST [None]
  - HAEMOLYSIS [None]
  - METHAEMOGLOBINAEMIA [None]
  - OFF LABEL USE [None]
  - OXYGEN SATURATION DECREASED [None]
